FAERS Safety Report 20104877 (Version 1)
Quarter: 2021Q4

REPORT INFORMATION
  Report Type: Spontaneous
  Country: CN (occurrence: CN)
  Receive Date: 20211124
  Receipt Date: 20211124
  Transmission Date: 20220303
  Serious: Yes (Other)
  Sender: FDA-Public Use
  Company Number: CN-009507513-2111CHN005794

PATIENT
  Age: 84 Year
  Sex: Male
  Weight: 68 kg

DRUGS (10)
  1. CILASTATIN SODIUM\IMIPENEM [Suspect]
     Active Substance: CILASTATIN SODIUM\IMIPENEM
     Indication: Pneumonia
     Dosage: DOSE: 1 G, FREQUENCY: EVERY 8 HOURS (Q8H)
     Route: 041
     Dates: start: 20211022, end: 20211028
  2. CILASTATIN SODIUM\IMIPENEM [Suspect]
     Active Substance: CILASTATIN SODIUM\IMIPENEM
     Dosage: 1 GRAM, Q12H
     Route: 041
     Dates: start: 20211029, end: 20211103
  3. DOXOFYLLINE [Suspect]
     Active Substance: DOXOFYLLINE
     Indication: Pneumonia
     Dosage: DOSE: 0.2 G, FREQUENCY: TWICE A DAY (BID)
     Route: 041
     Dates: start: 20211018, end: 20211104
  4. PIPERACILLIN SODIUM\TAZOBACTAM SODIUM [Concomitant]
     Active Substance: PIPERACILLIN SODIUM\TAZOBACTAM SODIUM
     Indication: Pneumonia
     Dosage: DOSE: 4.5 G, FREQUENCY: Q8H
     Route: 041
     Dates: start: 20211019, end: 20211022
  5. PIRACETAM [Concomitant]
     Active Substance: PIRACETAM
     Indication: Craniocerebral injury
     Dosage: DOSE: 0.8 G, FREQUENCY: 3 TIMES A DAY (TID)
     Route: 048
     Dates: start: 20201228, end: 20210513
  6. PIRACETAM [Concomitant]
     Active Substance: PIRACETAM
     Dosage: DOSE: 0.8 G, FREQUENCY: 3 TIMES A DAY (TID)
     Route: 045
     Dates: start: 20210514, end: 20211104
  7. SODIUM CHLORIDE [Concomitant]
     Active Substance: SODIUM CHLORIDE
     Indication: Pneumonia
     Dosage: 100 ML, TWICE A DAY (BID)
     Route: 041
     Dates: start: 20211018, end: 20211104
  8. SODIUM CHLORIDE [Concomitant]
     Active Substance: SODIUM CHLORIDE
     Dosage: 100 ML, Q8H
     Route: 041
     Dates: start: 20211019, end: 20211022
  9. SODIUM CHLORIDE [Concomitant]
     Active Substance: SODIUM CHLORIDE
     Dosage: 100 ML, Q8H
     Route: 041
     Dates: start: 20211022, end: 20211028
  10. SODIUM CHLORIDE [Concomitant]
     Active Substance: SODIUM CHLORIDE
     Dosage: 100 ML, Q12H
     Route: 041
     Dates: start: 20211029

REACTIONS (2)
  - Epilepsy [Recovered/Resolved]
  - Product use issue [Unknown]

NARRATIVE: CASE EVENT DATE: 20211026
